FAERS Safety Report 8320066-6 (Version None)
Quarter: 2012Q2

REPORT INFORMATION
  Report Type: 
  Country: None (occurrence: None)
  Receive Date: 20120428
  Receipt Date: 20120423
  Transmission Date: 20120825
  Serious: Yes (Other)
  Sender: FDA-Public Use
  Company Number: JP-ACCORD-008139

PATIENT
  Age: 48 Year
  Sex: Female

DRUGS (2)
  1. MITOMYCIN [Suspect]
     Dosage: ON DAY 1 AND 29
     Route: 040
  2. COMBINATIONS OF ANTINEOPLASTIC AGEN [Suspect]
     Dosage: ON DAYS 1-14 AND 20-43
     Route: 048

REACTIONS (12)
  - VOMITING [None]
  - DIARRHOEA [None]
  - ABDOMINAL PAIN [None]
  - LEUKOPENIA [None]
  - FATIGUE [None]
  - NEUTROPENIA [None]
  - OFF LABEL USE [None]
  - ANAEMIA [None]
  - THROMBOCYTOPENIA [None]
  - DERMATITIS [None]
  - DECREASED APPETITE [None]
  - NAUSEA [None]
